FAERS Safety Report 22600783 (Version 1)
Quarter: 2023Q2

REPORT INFORMATION
  Report Type: Spontaneous
  Country: SN (occurrence: SN)
  Receive Date: 20230614
  Receipt Date: 20230614
  Transmission Date: 20230722
  Serious: Yes (Other)
  Sender: FDA-Public Use
  Company Number: SN-SUN PHARMACEUTICAL INDUSTRIES LTD-2023R1-394245

PATIENT
  Age: 57 Year
  Sex: Male

DRUGS (4)
  1. PREDNISONE [Suspect]
     Active Substance: PREDNISONE
     Indication: Angioimmunoblastic T-cell lymphoma
     Dosage: UNK (40 MG/M2, EVERY 21 DAYS)
     Route: 065
  2. VINCRISTINE [Suspect]
     Active Substance: VINCRISTINE
     Indication: Angioimmunoblastic T-cell lymphoma
     Dosage: UNK (1.4 MG/M2, EVERY 21 DAYS)
     Route: 065
  3. CYCLOPHOSPHAMIDE [Suspect]
     Active Substance: CYCLOPHOSPHAMIDE
     Indication: Angioimmunoblastic T-cell lymphoma
     Dosage: UNK (750 MG/M2, EVERY 21 DAYS)
     Route: 065
  4. EPIRUBICIN [Suspect]
     Active Substance: EPIRUBICIN
     Indication: Angioimmunoblastic T-cell lymphoma
     Dosage: UNK (50 MG/M2, EVERY 21 DAYS)
     Route: 065

REACTIONS (1)
  - Disease recurrence [Unknown]
